FAERS Safety Report 8882939 (Version 2)
Quarter: 2012Q4

REPORT INFORMATION
  Report Type: Report from Study
  Country: HU (occurrence: HU)
  Receive Date: 20121103
  Receipt Date: 20121204
  Transmission Date: 20130627
  Serious: Yes (Hospitalization)
  Sender: FDA-Public Use
  Company Number: HU-VERTEX PHARMACEUTICAL INC.-2012-024014

PATIENT
  Age: 57 Year
  Sex: Female
  Weight: 69 kg

DRUGS (3)
  1. VX-950 (TELAPREVIR) [Suspect]
     Indication: CHRONIC HEPATITIS C
     Dosage: 2250 mg, tid
     Route: 065
     Dates: start: 20120808, end: 20121031
  2. RIBAVIRIN [Suspect]
     Indication: CHRONIC HEPATITIS C
     Dosage: 800 mg, bid
     Route: 065
     Dates: start: 20120808, end: 20121031
  3. PEG-INTERFERON [Suspect]
     Indication: CHRONIC HEPATITIS C
     Dosage: 120 mg, UNK
     Route: 065
     Dates: start: 20120808, end: 20121031

REACTIONS (1)
  - Hyponatraemia [Recovered/Resolved]
